FAERS Safety Report 8336873-X (Version None)
Quarter: 2012Q2

REPORT INFORMATION
  Report Type: 
  Country: None (occurrence: None)
  Receive Date: 20120504
  Receipt Date: 20110712
  Transmission Date: 20120825
  Serious: No
  Sender: FDA-Public Use
  Company Number: US-TEVA-2011002267

PATIENT
  Sex: Female
  Weight: 59.928 kg

DRUGS (8)
  1. CITALOPRAM HYDROBROMIDE [Concomitant]
     Dates: start: 20080101
  2. MIRAPEX [Concomitant]
     Dates: start: 20070101
  3. NUVIGIL [Suspect]
     Indication: NARCOLEPSY
     Dosage: 150 MILLIGRAM;
     Route: 048
     Dates: start: 20110429
  4. TOPAMAX [Concomitant]
     Dates: start: 20070101
  5. ESTRADIOL [Concomitant]
     Dates: start: 20100501
  6. ABILIFY [Concomitant]
     Dates: start: 20101201
  7. LIPITOR [Concomitant]
     Dates: start: 20040101
  8. CLONAZEPAM [Concomitant]
     Dates: start: 20080101

REACTIONS (3)
  - FEELING ABNORMAL [None]
  - DECREASED APPETITE [None]
  - DRUG EFFECT INCREASED [None]
